FAERS Safety Report 11673294 (Version 2)
Quarter: 2015Q4

REPORT INFORMATION
  Report Type: Spontaneous
  Country: US (occurrence: US)
  Receive Date: 20151027
  Receipt Date: 20151104
  Transmission Date: 20160304
  Serious: No
  Sender: FDA-Public Use
  Company Number: US-ELI_LILLY_AND_COMPANY-US201005006799

PATIENT
  Age: 77 Year
  Sex: Female

DRUGS (11)
  1. FORTEO [Suspect]
     Active Substance: TERIPARATIDE
     Dosage: 20 UG, QD
     Route: 058
     Dates: start: 20110730
  2. FORTEO [Suspect]
     Active Substance: TERIPARATIDE
     Dosage: 20 UG, QD
     Route: 058
     Dates: end: 201107
  3. KLONOPIN [Concomitant]
     Active Substance: CLONAZEPAM
     Indication: DEPRESSION
     Dosage: 0.5 MG, EACH MORNING
  4. NAPROXEN. [Concomitant]
     Active Substance: NAPROXEN
     Indication: MYALGIA
  5. FORTEO [Suspect]
     Active Substance: TERIPARATIDE
     Dosage: 20 UG, QD
     Route: 058
  6. CALCIUM [Concomitant]
     Active Substance: CALCIUM
  7. KLONOPIN [Concomitant]
     Active Substance: CLONAZEPAM
     Dosage: 0.5 MG, EACH EVENING
  8. LEXAPRO [Concomitant]
     Active Substance: ESCITALOPRAM OXALATE
     Indication: DEPRESSION
     Dosage: 20 MG, UNK
  9. LORADINE [Concomitant]
     Indication: HYPERSENSITIVITY
  10. MAGNESIUM [Concomitant]
     Active Substance: MAGNESIUM
  11. FORTEO [Suspect]
     Active Substance: TERIPARATIDE
     Indication: OSTEOPOROSIS
     Dosage: 20 UG, DAILY (1/D)
     Route: 058
     Dates: start: 20100521

REACTIONS (32)
  - Injection site erythema [Recovered/Resolved]
  - Injection site haemorrhage [Unknown]
  - Decreased appetite [Unknown]
  - Dermatitis contact [Unknown]
  - Injection site pain [Unknown]
  - Arthralgia [Unknown]
  - Nausea [Unknown]
  - Weight decreased [Not Recovered/Not Resolved]
  - Anxiety [Unknown]
  - Pruritus [Not Recovered/Not Resolved]
  - Asthenia [Not Recovered/Not Resolved]
  - Arterial occlusive disease [Unknown]
  - Wrong technique in product usage process [Unknown]
  - Abdominal distension [Unknown]
  - Injection site swelling [Unknown]
  - Rash [Unknown]
  - Fatigue [Unknown]
  - Pain in extremity [Unknown]
  - Venous injury [Unknown]
  - Injection site bruising [Unknown]
  - Confusional state [Unknown]
  - Arthralgia [Not Recovered/Not Resolved]
  - Muscle spasms [Unknown]
  - Heart rate increased [Unknown]
  - Fatigue [Recovered/Resolved]
  - Hunger [Unknown]
  - Nervousness [Unknown]
  - Eating disorder [Not Recovered/Not Resolved]
  - Dizziness [Unknown]
  - Heart rate increased [Recovered/Resolved]
  - Decreased appetite [Not Recovered/Not Resolved]
  - Depression [Unknown]

NARRATIVE: CASE EVENT DATE: 20100528
